FAERS Safety Report 9418351 (Version 2)
Quarter: 2013Q4

REPORT INFORMATION
  Report Type: Report from Study
  Country: BR (occurrence: BR)
  Receive Date: 20130725
  Receipt Date: 20131107
  Transmission Date: 20140711
  Serious: Yes (Other)
  Sender: FDA-Public Use
  Company Number: BR-ROCHE-1251777

PATIENT
  Age: 60 Year
  Sex: Female
  Weight: 72 kg

DRUGS (4)
  1. ACTEMRA [Suspect]
     Indication: RHEUMATOID ARTHRITIS
     Dosage: TOTAL 18 INFUSIONS
     Route: 065
     Dates: start: 20110611
  2. ACTEMRA [Suspect]
     Route: 065
     Dates: end: 2012
  3. PROLOPA [Concomitant]
  4. SERTRALINE HYDROCHLORIDE [Concomitant]

REACTIONS (2)
  - Depression [Not Recovered/Not Resolved]
  - Parkinson^s disease [Not Recovered/Not Resolved]
